FAERS Safety Report 13639018 (Version 1)
Quarter: 2017Q2

REPORT INFORMATION
  Report Type: Spontaneous
  Country: US (occurrence: US)
  Receive Date: 20170609
  Receipt Date: 20170609
  Transmission Date: 20170830
  Serious: Yes (Life-Threatening, Hospitalization, Other)
  Sender: FDA-Public Use
  Company Number: US-BAYER-2017-111266

PATIENT
  Age: 58 Year
  Sex: Male

DRUGS (1)
  1. GADAVIST [Suspect]
     Active Substance: GADOBUTROL
     Indication: SCAN WITH CONTRAST
     Dosage: 10 ML, UNK
     Dates: start: 20170603

REACTIONS (2)
  - Dyspnoea [Recovered/Resolved]
  - Rash generalised [None]

NARRATIVE: CASE EVENT DATE: 20170603
